FAERS Safety Report 8889262 (Version 3)
Quarter: 2013Q2

REPORT INFORMATION
  Report Type: Report from Study
  Country: BR (occurrence: BR)
  Receive Date: 20121106
  Receipt Date: 20130404
  Transmission Date: 20140414
  Serious: Yes (Hospitalization)
  Sender: FDA-Public Use
  Company Number: BR-ROCHE-1129043

PATIENT
  Sex: Female
  Weight: 90 kg

DRUGS (12)
  1. MABTHERA [Suspect]
     Indication: RHEUMATOID ARTHRITIS
     Route: 065
     Dates: start: 20101008
  2. MABTHERA [Suspect]
     Route: 065
     Dates: start: 20101029
  3. MABTHERA [Suspect]
     Route: 065
     Dates: start: 20120320
  4. MABTHERA [Suspect]
     Route: 065
     Dates: start: 20120403
  5. MABTHERA [Suspect]
     Route: 065
     Dates: start: 201204
  6. PREDNISONE [Concomitant]
  7. DIOVAN TRIPLE [Concomitant]
  8. LYRICA [Concomitant]
  9. ULTRACET [Concomitant]
     Indication: PAIN
  10. TRAMAL [Concomitant]
     Indication: PAIN
  11. SIMVASTATIN [Concomitant]
  12. CALCIUM CARBAMIDE [Concomitant]

REACTIONS (8)
  - Arthropathy [Unknown]
  - Hypertension [Recovered/Resolved]
  - Fibromyalgia [Unknown]
  - Productive cough [Unknown]
  - Throat irritation [Unknown]
  - Oropharyngeal pain [Unknown]
  - Tinnitus [Unknown]
  - Inflammation [Unknown]
